FAERS Safety Report 18541232 (Version 1)
Quarter: 2020Q4

REPORT INFORMATION
  Report Type: Spontaneous
  Country: US (occurrence: US)
  Receive Date: 20201124
  Receipt Date: 20201124
  Transmission Date: 20210114
  Serious: Yes (Death, Other)
  Sender: FDA-Public Use
  Company Number: US-PURDUE-USA-2020-0177155

PATIENT
  Age: 75 Year
  Sex: Female

DRUGS (3)
  1. OXYCODONE/ ACETAMINOPHEN TABLETS [Suspect]
     Active Substance: ACETAMINOPHEN\OXYCODONE HYDROCHLORIDE
     Indication: PRODUCT USED FOR UNKNOWN INDICATION
     Dosage: UNK
     Route: 048
  2. ENDOCET [Suspect]
     Active Substance: ACETAMINOPHEN\OXYCODONE HYDROCHLORIDE
     Indication: PRODUCT USED FOR UNKNOWN INDICATION
     Dosage: UNK
     Route: 065
  3. OXYCODONE HYDROCHLORIDE (SIMILAR TO NDA 22-272) [Suspect]
     Active Substance: OXYCODONE HYDROCHLORIDE
     Indication: PRODUCT USED FOR UNKNOWN INDICATION
     Dosage: UNK
     Route: 048

REACTIONS (12)
  - Death [Fatal]
  - Headache [Unknown]
  - Lung disorder [Unknown]
  - Cerebral ischaemia [Unknown]
  - Decreased appetite [Unknown]
  - Septic shock [Fatal]
  - Chills [Unknown]
  - Pancreatitis bacterial [Unknown]
  - Respiratory failure [Fatal]
  - Diarrhoea [Unknown]
  - Vomiting [Unknown]
  - Renal injury [Unknown]

NARRATIVE: CASE EVENT DATE: 20200110
